FAERS Safety Report 6558991-9 (Version None)
Quarter: 2010Q1

REPORT INFORMATION
  Report Type: 
  Country: None (occurrence: None)
  Receive Date: 20100129
  Receipt Date: 20100126
  Transmission Date: 20100710
  Serious: Yes (Death, Other)
  Sender: FDA-Public Use
  Company Number: PHHY2009IT57913

PATIENT
  Sex: Female

DRUGS (5)
  1. ZOMETA [Suspect]
     Indication: METASTASES TO BONE
     Dosage: 4 MG, QMO
     Route: 042
     Dates: start: 20020801, end: 20030701
  2. DOXORUBICIN HCL [Concomitant]
  3. DOCETAXEL [Concomitant]
  4. EPIRUBICIN [Concomitant]
  5. VINORELBINE [Concomitant]

REACTIONS (4)
  - DEATH [None]
  - OSTEONECROSIS [None]
  - PLASTIC SURGERY [None]
  - SEQUESTRECTOMY [None]
